FAERS Safety Report 9978323 (Version 1)
Quarter: 2014Q1

REPORT INFORMATION
  Report Type: Spontaneous
  Country: BA (occurrence: BA)
  Receive Date: 20140306
  Receipt Date: 20140306
  Transmission Date: 20141002
  Serious: Yes (Hospitalization)
  Sender: FDA-Public Use
  Company Number: BA-MERCK-1403BIH001126

PATIENT
  Sex: Female

DRUGS (1)
  1. PEGINTRON REDIPEN [Suspect]
     Dosage: UNK

REACTIONS (10)
  - Disorientation [Recovering/Resolving]
  - Rash [Recovering/Resolving]
  - Pyrexia [Recovering/Resolving]
  - Headache [Recovering/Resolving]
  - Diarrhoea [Recovering/Resolving]
  - Psychotic disorder [Recovering/Resolving]
  - Dizziness [Recovering/Resolving]
  - Hypertension [Recovering/Resolving]
  - Vomiting [Recovering/Resolving]
  - Nuclear magnetic resonance imaging brain abnormal [Recovering/Resolving]
